FAERS Safety Report 8132629-1 (Version None)
Quarter: 2012Q1

REPORT INFORMATION
  Report Type: 
  Country: None (occurrence: None)
  Receive Date: 20120213
  Receipt Date: 20120208
  Transmission Date: 20120608
  Serious: Yes (Hospitalization)
  Sender: FDA-Public Use
  Company Number: US-GLAXOSMITHKLINE-A0965367A

PATIENT
  Age: 87 Year
  Sex: Male
  Weight: 81.8 kg

DRUGS (4)
  1. NEURONTIN [Suspect]
     Indication: NEURALGIA
     Dates: end: 20110101
  2. LYRICA [Suspect]
     Indication: NEURALGIA
     Route: 048
     Dates: start: 20111101, end: 20120108
  3. REQUIP [Suspect]
     Indication: RESTLESS LEGS SYNDROME
     Route: 048
     Dates: start: 20111101, end: 20120108
  4. ACETAMINOPHEN [Concomitant]

REACTIONS (15)
  - DISTURBANCE IN ATTENTION [None]
  - CARDIAC FAILURE CONGESTIVE [None]
  - BURNING SENSATION [None]
  - ASTHENIA [None]
  - SWELLING [None]
  - CHEST PAIN [None]
  - URINARY TRACT INFECTION [None]
  - MEMORY IMPAIRMENT [None]
  - HYPERSOMNIA [None]
  - DRY MOUTH [None]
  - WEIGHT INCREASED [None]
  - FALL [None]
  - FATIGUE [None]
  - DYSKINESIA [None]
  - MUSCULAR WEAKNESS [None]
